FAERS Safety Report 24624604 (Version 5)
Quarter: 2025Q1

REPORT INFORMATION
  Report Type: Spontaneous
  Country: US (occurrence: US)
  Receive Date: 20241115
  Receipt Date: 20250129
  Transmission Date: 20250409
  Serious: No
  Sender: PFIZER
  Company Number: US-PFIZER INC-202400297180

PATIENT
  Age: 14 Year
  Sex: Male

DRUGS (2)
  1. GENOTROPIN [Suspect]
     Active Substance: SOMATROPIN
     Indication: Growth hormone deficiency
     Dates: start: 202311
  2. ANASTROZOLE [Concomitant]
     Active Substance: ANASTROZOLE
     Indication: Growth hormone deficiency
     Dosage: 1 MG, DAILY

REACTIONS (7)
  - Poor quality device used [Unknown]
  - Device use error [Unknown]
  - Device breakage [Unknown]
  - Device physical property issue [Unknown]
  - Device delivery system issue [Unknown]
  - Incorrect dose administered by device [Unknown]
  - Drug dose omission by device [Unknown]

NARRATIVE: CASE EVENT DATE: 20241106
